FAERS Safety Report 13580542 (Version 1)
Quarter: 2017Q2

REPORT INFORMATION
  Report Type: Spontaneous
  Country: US (occurrence: US)
  Receive Date: 20170525
  Receipt Date: 20170525
  Transmission Date: 20170830
  Serious: No
  Sender: FDA-Public Use
  Company Number: None

PATIENT
  Age: 69 Year
  Sex: Male

DRUGS (1)
  1. DOCETAXEL. [Suspect]
     Active Substance: DOCETAXEL
     Indication: PROSTATE CANCER
     Route: 042
     Dates: start: 20170524, end: 20170524

REACTIONS (10)
  - Erythema [None]
  - Dyspnoea [None]
  - Hypertension [None]
  - Anaphylactic reaction [None]
  - Pruritus [None]
  - Back pain [None]
  - Anxiety [None]
  - Myalgia [None]
  - Urticaria [None]
  - Arthralgia [None]

NARRATIVE: CASE EVENT DATE: 20170524
